FAERS Safety Report 11394177 (Version 1)
Quarter: 2015Q3

REPORT INFORMATION
  Report Type: Spontaneous
  Country: US (occurrence: None)
  Receive Date: 20150817
  Receipt Date: 20150817
  Transmission Date: 20151125
  Serious: Yes (Other)
  Sender: FDA-Public Use
  Company Number: None

PATIENT
  Age: 55 Year
  Sex: Female
  Weight: 54.43 kg

DRUGS (3)
  1. CYMBALTA [Suspect]
     Active Substance: DULOXETINE HYDROCHLORIDE
     Indication: BIPOLAR DISORDER
     Route: 048
     Dates: start: 20070831, end: 20150815
  2. SEOQUIL [Concomitant]
  3. LIBRIUM [Concomitant]
     Active Substance: CHLORDIAZEPOXIDE HYDROCHLORIDE

REACTIONS (17)
  - Myalgia [None]
  - Indifference [None]
  - Malaise [None]
  - Coordination abnormal [None]
  - Vision blurred [None]
  - Anxiety [None]
  - Irritability [None]
  - Crying [None]
  - Nausea [None]
  - Headache [None]
  - Nightmare [None]
  - Drug withdrawal syndrome [None]
  - Suicidal ideation [None]
  - Hyperhidrosis [None]
  - Anger [None]
  - Muscle spasms [None]
  - Tinnitus [None]

NARRATIVE: CASE EVENT DATE: 20150816
